FAERS Safety Report 10398352 (Version 1)
Quarter: 2014Q3

REPORT INFORMATION
  Report Type: Spontaneous
  Country: US (occurrence: None)
  Receive Date: 20140818
  Receipt Date: 20140818
  Transmission Date: 20150326
  Serious: Yes (Hospitalization)
  Sender: FDA-Public Use
  Company Number: None

PATIENT
  Age: 83 Year
  Sex: Male
  Weight: 91.17 kg

DRUGS (7)
  1. DAPTOMYCIN [Suspect]
     Active Substance: DAPTOMYCIN
     Indication: DEVICE RELATED INFECTION
     Route: 042
     Dates: start: 20140724, end: 20140729
  2. PANTOPRAZOLE [Concomitant]
     Active Substance: PANTOPRAZOLE SODIUM
  3. DOCUSATE/SENNOSIDES [Concomitant]
  4. NAFCILLIN [Concomitant]
     Active Substance: NAFCILLIN\NAFCILLIN SODIUM
  5. ASPIRIN. [Concomitant]
     Active Substance: ASPIRIN
  6. RIFAMPIN. [Concomitant]
     Active Substance: RIFAMPIN
  7. ONDANSETRON [Concomitant]
     Active Substance: ONDANSETRON

REACTIONS (9)
  - Product contamination physical [None]
  - Pyrexia [None]
  - Blood creatine phosphokinase increased [None]
  - Red blood cell sedimentation rate increased [None]
  - Vomiting [None]
  - Haemoglobin decreased [None]
  - Nausea [None]
  - Product quality issue [None]
  - C-reactive protein increased [None]

NARRATIVE: CASE EVENT DATE: 20140724
